FAERS Safety Report 10024402 (Version 2)
Quarter: 2014Q1

REPORT INFORMATION
  Report Type: Spontaneous
  Country: US (occurrence: None)
  Receive Date: 20140318
  Receipt Date: 20140328
  Transmission Date: 20141002
  Serious: Yes (Other)
  Sender: FDA-Public Use
  Company Number: 2014-US-002994

PATIENT
  Age: 45 Year
  Sex: Male

DRUGS (2)
  1. XYREM [Suspect]
     Indication: CATAPLEXY
     Route: 048
     Dates: start: 200611, end: 200612
  2. XYREM [Suspect]
     Indication: NARCOLEPSY
     Route: 048
     Dates: start: 200611, end: 200612

REACTIONS (4)
  - Sleep apnoea syndrome [None]
  - Insomnia [None]
  - Discomfort [None]
  - Feeling abnormal [None]
